FAERS Safety Report 7734778-6 (Version None)
Quarter: 2011Q3

REPORT INFORMATION
  Report Type: 
  Country: None (occurrence: None)
  Receive Date: 20110901
  Receipt Date: 20110819
  Transmission Date: 20111222
  Serious: Yes (Hospitalization)
  Sender: FDA-Public Use
  Company Number: 2011AP001844

PATIENT
  Age: 60 Year
  Sex: Male

DRUGS (6)
  1. ROSUVASTATIN [Suspect]
     Indication: DYSLIPIDAEMIA
     Dosage: 40 MG;UNKNOWN
  2. PRAVASTATIN [Concomitant]
  3. GEMFIBROZIL [Suspect]
     Indication: DYSLIPIDAEMIA
     Dosage: 600 MG;UNKNOWN;BID
  4. KALETRA [Suspect]
     Indication: HIV INFECTION
     Dosage: 500 MG;UNKNOWN;BID
  5. TENOFOVIR DISOPROXIL FUMARATE [Suspect]
     Indication: HIV INFECTION
     Dosage: 245 MG;UNKNOWN;QD, 245 MG;UNKNOWN;QOD
  6. CIPROFLOXACIN [Concomitant]

REACTIONS (6)
  - ABDOMINAL PAIN [None]
  - RENAL IMPAIRMENT [None]
  - DRUG INTERACTION [None]
  - DYSPNOEA EXERTIONAL [None]
  - RHABDOMYOLYSIS [None]
  - HAEMATURIA [None]
